FAERS Safety Report 9184053 (Version 1)
Quarter: 2013Q1

REPORT INFORMATION
  Report Type: Spontaneous
  Country: US (occurrence: US)
  Receive Date: 20130322
  Receipt Date: 20130322
  Transmission Date: 20140127
  Serious: No
  Sender: FDA-Public Use
  Company Number: US-BRISTOL-MYERS SQUIBB COMPANY-16718934

PATIENT
  Age: 71 Year
  Sex: Female
  Weight: 69 kg

DRUGS (15)
  1. ERBITUX [Suspect]
     Indication: HEAD AND NECK CANCER
     Dosage: NO OF INF 3 LOADING DOSE: 725MG 9JUN12, 155MG 11JUN,26JUN. 9JUN12 THROUGH 20JUL12
     Route: 042
     Dates: start: 20120609
  2. BUDEPRION [Concomitant]
     Dosage: FORM: XL STRENGTH: 450MG
     Route: 048
  3. CLIMARA [Concomitant]
     Dosage: 1 DF= 1 PATCH. PRO
     Route: 061
  4. CLONAZEPAM [Concomitant]
     Route: 048
  5. DIFLUCAN [Concomitant]
     Route: 048
  6. HYDROCODONE [Concomitant]
     Dosage: 1 DF= 7.5/500MG EVERY 6 HRS
     Route: 048
  7. IMIPRAMINE [Concomitant]
     Dosage: 1DF= 1 TAB STRENGTH: 50MG. FREQ: URINARY
     Route: 048
  8. LANSOPRAZOLE [Concomitant]
     Dosage: 1DF= 1 TAB, STRENGTH: 30MG. DR
     Route: 048
  9. LEVOXYL [Concomitant]
     Dosage: 1 DF= 1 TAB. STRENGTH: 0.112MICROGRAM
     Route: 048
  10. LEXAPRO [Concomitant]
     Dosage: 1 DF= 1/2 TAB. STRENGTH: 10MG
     Route: 048
  11. LIDOCAINE VISCOUS [Concomitant]
     Route: 048
  12. LIPITOR [Concomitant]
     Route: 048
  13. PREVACID [Concomitant]
     Dosage: 1 DF= 1 TAB. STRENGTH: 15MG
     Route: 048
  14. TRAZODONE HCL [Concomitant]
     Dosage: 1 DF= 1 TAB. AT BED TIME. STRENGTH: 100MG
     Route: 048
  15. VERAPAMIL [Concomitant]
     Dosage: 1 DF= 1 TAB. STRENGTH: 120MG
     Route: 048

REACTIONS (2)
  - Oral candidiasis [Recovered/Resolved]
  - Constipation [Unknown]
